FAERS Safety Report 5498313-8 (Version None)
Quarter: 2007Q4

REPORT INFORMATION
  Report Type: 
  Country: None (occurrence: None)
  Receive Date: 20071025
  Receipt Date: 20070430
  Transmission Date: 20080405
  Serious: No
  Sender: FDA-Public Use
  Company Number: A0649251A

PATIENT
  Age: 60 Year
  Sex: Male

DRUGS (10)
  1. ADVAIR DISKUS 100/50 [Suspect]
     Indication: ASTHMA
     Dosage: 1PUFF TWICE PER DAY
     Route: 055
  2. SYNTHROID [Concomitant]
  3. PROZAC [Concomitant]
  4. KLONOPIN [Concomitant]
  5. METOPROLOL TARTRATE [Concomitant]
  6. LIPITOR [Concomitant]
  7. PREVACID [Concomitant]
  8. MULTI-VITAMIN [Concomitant]
  9. GLUCOSAMINE SULFATE [Concomitant]
  10. TYLENOL (CAPLET) [Concomitant]

REACTIONS (1)
  - DYSPHONIA [None]
